FAERS Safety Report 4565618-4 (Version None)
Quarter: 2005Q1

REPORT INFORMATION
  Report Type: 
  Country: None (occurrence: None)
  Receive Date: 20050126
  Receipt Date: 20050110
  Transmission Date: 20050727
  Serious: No
  Sender: FDA-Public Use
  Company Number: SP00383

PATIENT
  Age: 11 Day
  Sex: Female

DRUGS (1)
  1. COLAZAL [Suspect]
     Indication: COLITIS ULCERATIVE
     Dosage: 2.25G/TID, ORAL
     Route: 048
     Dates: start: 20020101

REACTIONS (5)
  - DRUG EXPOSURE DURING PREGNANCY [None]
  - FLOPPY INFANT [None]
  - HYPOTHYROIDISM [None]
  - NEONATAL DISORDER [None]
  - PREGNANCY [None]
